FAERS Safety Report 4424053-X (Version None)
Quarter: 2004Q3

REPORT INFORMATION
  Report Type: 
  Country: None (occurrence: None)
  Receive Date: 20040805
  Receipt Date: 20040805
  Transmission Date: 20050211
  Serious: Yes (Other)
  Sender: FDA-Public Use
  Company Number: None

PATIENT
  Age: 48 Year
  Sex: Female
  Weight: 54.4316 kg

DRUGS (1)
  1. MALARONE [Suspect]
     Indication: MALARIA PROPHYLAXIS
     Dosage: ONE PO QD
     Route: 048
     Dates: start: 20040616, end: 20040628

REACTIONS (3)
  - BLISTER [None]
  - ERYTHEMA [None]
  - PAIN [None]
